FAERS Safety Report 8554274-6 (Version None)
Quarter: 2012Q3

REPORT INFORMATION
  Report Type: 
  Country: None (occurrence: None)
  Receive Date: 20120731
  Receipt Date: 20120726
  Transmission Date: 20120928
  Serious: No
  Sender: FDA-Public Use
  Company Number: US-TEVA-350724USA

PATIENT
  Sex: Female

DRUGS (2)
  1. NUVIGIL [Suspect]
     Indication: FATIGUE
     Route: 048
     Dates: start: 20120714, end: 20120701
  2. NADOLOL [Concomitant]
     Indication: BLOOD PRESSURE

REACTIONS (8)
  - MALAISE [None]
  - FATIGUE [None]
  - OFF LABEL USE [None]
  - PAIN [None]
  - ASTHENIA [None]
  - TONGUE ABSCESS [None]
  - PYREXIA [None]
  - MOUTH ULCERATION [None]
